FAERS Safety Report 4897398-7 (Version None)
Quarter: 2006Q1

REPORT INFORMATION
  Report Type: 
  Country: None (occurrence: None)
  Receive Date: 20060201
  Receipt Date: 20060123
  Transmission Date: 20060701
  Serious: Yes (Hospitalization, Disabling, Other)
  Sender: FDA-Public Use
  Company Number: PHRM2006FR00587

PATIENT
  Age: 19 Year
  Sex: Female

DRUGS (2)
  1. LAMISIL [Suspect]
     Indication: NAIL TINEA
     Dosage: 250 MG, QD
     Route: 048
     Dates: start: 20051125, end: 20051205
  2. DESOGESTREL AND ETHINYL ESTRADIOL [Suspect]
     Indication: ORAL CONTRACEPTION
     Route: 048

REACTIONS (3)
  - ABORTION INDUCED [None]
  - DRUG INTERACTION [None]
  - PREGNANCY ON ORAL CONTRACEPTIVE [None]
